FAERS Safety Report 4831118-7 (Version None)
Quarter: 2005Q4

REPORT INFORMATION
  Report Type: 
  Country: None (occurrence: None)
  Receive Date: 20051114
  Receipt Date: 20051028
  Transmission Date: 20060501
  Serious: Yes (Other)
  Sender: FDA-Public Use
  Company Number: EWC051046268

PATIENT
  Age: 72 Year
  Sex: Male
  Weight: 64 kg

DRUGS (7)
  1. GEMCITABINE HYDROCHLORIDE-IV (GEMCITABINE) [Suspect]
     Indication: NON-SMALL CELL LUNG CANCER
     Dosage: 1580 MG/4 OTHER
     Dates: start: 20041005, end: 20041116
  2. CARBOPLATIN [Suspect]
     Indication: NON-SMALL CELL LUNG CANCER
     Dosage: 340 MG/2 OTHER
     Dates: start: 20041005, end: 20041109
  3. ZOFRAN [Concomitant]
  4. ULCERMIN (SUCRALFATE) [Concomitant]
  5. CODEIN (CODEINE PHOSPHATEHEMIHYDRATE) [Concomitant]
  6. ONDANSETRON [Concomitant]
  7. TRANSAMIN (TRANEXAMIC ACID) [Concomitant]

REACTIONS (7)
  - BRONCHIAL DISORDER [None]
  - CONDITION AGGRAVATED [None]
  - HAEMOGLOBIN DECREASED [None]
  - HAEMOPTYSIS [None]
  - MASS [None]
  - RED BLOOD CELL COUNT DECREASED [None]
  - WHITE BLOOD CELL COUNT INCREASED [None]
